FAERS Safety Report 23202868 (Version 1)
Quarter: 2023Q4

REPORT INFORMATION
  Report Type: Spontaneous
  Country: US (occurrence: US)
  Receive Date: 20231120
  Receipt Date: 20231120
  Transmission Date: 20240110
  Serious: No
  Sender: FDA-Public Use
  Company Number: US-SA-SAC20231115001391

PATIENT
  Age: 47 Year
  Sex: Female

DRUGS (19)
  1. DUPIXENT [Suspect]
     Active Substance: DUPILUMAB
     Indication: Asthma
     Dosage: 300 MG, QOW
     Route: 058
  2. ASPIRIN [Concomitant]
     Active Substance: ASPIRIN
  3. ATIVAN [Concomitant]
     Active Substance: LORAZEPAM
  4. BREO ELLIPTA [Concomitant]
     Active Substance: FLUTICASONE FUROATE\VILANTEROL TRIFENATATE
  5. CLARITIN [Concomitant]
     Active Substance: LORATADINE
  6. CRESTOR [Concomitant]
     Active Substance: ROSUVASTATIN CALCIUM
  7. DICLOFENAC [Concomitant]
     Active Substance: DICLOFENAC
  8. ENTRESTO [Concomitant]
     Active Substance: SACUBITRIL\VALSARTAN
  9. FUROSEMIDE [Concomitant]
     Active Substance: FUROSEMIDE
  10. HALOPERIDOL [Concomitant]
     Active Substance: HALOPERIDOL
  11. MUCINEX [Concomitant]
     Active Substance: GUAIFENESIN
  12. POTASSIUM [Concomitant]
     Active Substance: POTASSIUM
  13. PRISTIQ EXTENDED-RELEASE [Concomitant]
     Active Substance: DESVENLAFAXINE SUCCINATE
  14. RANOLAZINE [Concomitant]
     Active Substance: RANOLAZINE
  15. SEROQUEL [Concomitant]
     Active Substance: QUETIAPINE FUMARATE
  16. TRAZODONE [Concomitant]
     Active Substance: TRAZODONE HYDROCHLORIDE
  17. WELLBUTRIN [Concomitant]
     Active Substance: BUPROPION HYDROCHLORIDE
  18. FERROUS SULFATE [Concomitant]
     Active Substance: FERROUS SULFATE
  19. DIVALPROEX SODIUM [Concomitant]
     Active Substance: DIVALPROEX SODIUM

REACTIONS (2)
  - Blood glucose decreased [Not Recovered/Not Resolved]
  - Asthenia [Not Recovered/Not Resolved]
